FAERS Safety Report 10279932 (Version 2)
Quarter: 2014Q3

REPORT INFORMATION
  Report Type: Spontaneous
  Country: GB (occurrence: None)
  Receive Date: 20140702
  Receipt Date: 20140715
  Transmission Date: 20150326
  Serious: Yes (Disabling, Other)
  Sender: FDA-Public Use
  Company Number: AUR-APL-2014-06909

PATIENT
  Age: 61 Year
  Sex: Female
  Weight: 59.4 kg

DRUGS (5)
  1. GABAPENTIN (GABAPENTIN) [Concomitant]
     Active Substance: GABAPENTIN
  2. ADCAL /07357001/(CALCIUM CARBONATE) [Concomitant]
  3. MORPHINE SULPHATE (MORPHINE SULFATE) [Concomitant]
  4. SIMVASTATIN 20MG (SIMVASTATIN) UNKNOWN, 20MG [Suspect]
     Active Substance: SIMVASTATIN
     Indication: HYPERCHOLESTEROLAEMIA
     Route: 048
  5. ZOPICLONE (ZOPICLONE) [Concomitant]
     Active Substance: ZOPICLONE

REACTIONS (1)
  - Autonomic nervous system imbalance [None]

NARRATIVE: CASE EVENT DATE: 2010
